FAERS Safety Report 17231809 (Version 2)
Quarter: 2020Q1

REPORT INFORMATION
  Report Type: Report from Study
  Country: US (occurrence: US)
  Receive Date: 20200103
  Receipt Date: 20200110
  Transmission Date: 20200409
  Serious: Yes (Hospitalization)
  Sender: FDA-Public Use
  Company Number: US-BRISTOL-MYERS SQUIBB COMPANY-BMS-2019-124863

PATIENT
  Age: 39 Year
  Sex: Female
  Weight: 78.02 kg

DRUGS (2)
  1. RELATLIMAB [Suspect]
     Active Substance: RELATLIMAB
     Indication: GLIOBLASTOMA MULTIFORME
     Dosage: 800 MILLIGRAM
     Route: 042
     Dates: start: 20191009
  2. NIVOLUMAB [Suspect]
     Active Substance: NIVOLUMAB
     Indication: GLIOBLASTOMA MULTIFORME
     Dosage: 1200 MILLIGRAM
     Route: 042
     Dates: start: 20191009

REACTIONS (2)
  - Memory impairment [Not Recovered/Not Resolved]
  - Aphasia [Not Recovered/Not Resolved]

NARRATIVE: CASE EVENT DATE: 20191223
